FAERS Safety Report 4346674-5 (Version None)
Quarter: 2004Q2

REPORT INFORMATION
  Report Type: 
  Country: None (occurrence: None)
  Receive Date: 20040426
  Receipt Date: 20040311
  Transmission Date: 20050107
  Serious: Yes (Other)
  Sender: FDA-Public Use
  Company Number: US-ROCHE-361590

PATIENT
  Age: 45 Year
  Sex: Female

DRUGS (2)
  1. ACCUTANE [Suspect]
     Indication: ACNE
     Route: 048
     Dates: start: 20030715
  2. PLAQUENIL [Interacting]
     Indication: RAYNAUD'S PHENOMENON
     Dosage: START DATE REPORTED AS 3 TO 4 YEARS AGO.
     Route: 048
     Dates: start: 20010615

REACTIONS (1)
  - DRUG INTERACTION [None]
